FAERS Safety Report 8545895-5 (Version None)
Quarter: 2012Q3

REPORT INFORMATION
  Report Type: 
  Country: None (occurrence: None)
  Receive Date: 20120727
  Receipt Date: 20111116
  Transmission Date: 20120928
  Serious: No
  Sender: FDA-Public Use
  Company Number: US-ASTRAZENECA-2011SE70261

PATIENT
  Age: 63 Year
  Sex: Male
  Weight: 77.1 kg

DRUGS (2)
  1. SEROQUEL [Suspect]
     Indication: SLEEP DISORDER
     Dosage: ONE-TWO TABLETS
     Route: 048
  2. SEROQUEL [Suspect]
     Indication: ANXIETY
     Dosage: ONE-TWO TABLETS
     Route: 048

REACTIONS (5)
  - ANXIETY [None]
  - DRUG DOSE OMISSION [None]
  - CARDIAC DISORDER [None]
  - DIABETES MELLITUS [None]
  - OFF LABEL USE [None]
